FAERS Safety Report 7360506-2 (Version None)
Quarter: 2011Q1

REPORT INFORMATION
  Report Type: 
  Country: None (occurrence: None)
  Receive Date: 20110318
  Receipt Date: 20110316
  Transmission Date: 20110831
  Serious: No
  Sender: FDA-Public Use
  Company Number: US-PFIZER INC-2011058624

PATIENT
  Sex: Female

DRUGS (1)
  1. PRISTIQ [Suspect]
     Dosage: UNK
     Route: 048
     Dates: start: 20110314, end: 20110316

REACTIONS (5)
  - AGITATION [None]
  - MUSCLE TWITCHING [None]
  - RESTLESSNESS [None]
  - HEADACHE [None]
  - INSOMNIA [None]
